FAERS Safety Report 20381598 (Version 4)
Quarter: 2022Q2

REPORT INFORMATION
  Report Type: Spontaneous
  Country: US (occurrence: US)
  Receive Date: 20220127
  Receipt Date: 20220418
  Transmission Date: 20220721
  Serious: Yes (Other)
  Sender: FDA-Public Use
  Company Number: US-BAYER-2022A012258

PATIENT
  Age: 33 Year
  Sex: Female
  Weight: 69.8 kg

DRUGS (1)
  1. SKYLA [Suspect]
     Active Substance: LEVONORGESTREL
     Indication: Contraception
     Dosage: 14?G/DAY
     Route: 015
     Dates: start: 20200921, end: 20220113

REACTIONS (6)
  - Pregnancy with contraceptive device [Recovered/Resolved]
  - Haemorrhage in pregnancy [None]
  - Device dislocation [Recovered/Resolved]
  - Drug ineffective [None]
  - Abortion missed [None]
  - Complication of device removal [None]

NARRATIVE: CASE EVENT DATE: 20211220
